FAERS Safety Report 24023573 (Version 10)
Quarter: 2024Q3

REPORT INFORMATION
  Report Type: Report from Study
  Country: CN (occurrence: CN)
  Receive Date: 20240627
  Receipt Date: 20240710
  Transmission Date: 20241016
  Serious: No
  Sender: ROCHE
  Company Number: CN-ROCHE-3041631

PATIENT
  Age: 57 Year
  Sex: Female
  Weight: 60.5 kg

DRUGS (53)
  1. ALECTINIB [Suspect]
     Active Substance: ALECTINIB
     Indication: Lung cancer metastatic
     Dosage: POST ENROLLMENT IN STUDY ARM
     Route: 048
     Dates: start: 20211126
  2. ALECTINIB [Suspect]
     Active Substance: ALECTINIB
     Route: 048
     Dates: start: 20181019
  3. SITAGLIPTIN PHOSPHATE [Concomitant]
     Active Substance: SITAGLIPTIN PHOSPHATE
     Indication: Type 2 diabetes mellitus
     Route: 048
     Dates: start: 2020
  4. LEVOFLOXACIN [Concomitant]
     Active Substance: LEVOFLOXACIN
     Indication: Urinary tract infection
     Route: 050
     Dates: start: 20211223, end: 20211227
  5. LEVOFLOXACIN [Concomitant]
     Active Substance: LEVOFLOXACIN
     Indication: Urinary tract infection
     Route: 048
     Dates: start: 20211226, end: 20211227
  6. ZOLEDRONIC ACID [Concomitant]
     Active Substance: ZOLEDRONIC ACID
     Indication: Metastases to bone
     Route: 050
     Dates: start: 20220119, end: 20220119
  7. ZOLEDRONIC ACID [Concomitant]
     Active Substance: ZOLEDRONIC ACID
     Route: 050
     Dates: start: 20220223, end: 20220223
  8. ZOLEDRONIC ACID [Concomitant]
     Active Substance: ZOLEDRONIC ACID
     Route: 050
     Dates: start: 20211122, end: 20211122
  9. HERBALS [Concomitant]
     Active Substance: HERBALS
     Indication: Hepatic steatosis
     Route: 050
     Dates: start: 20211222, end: 20211226
  10. HERBALS [Concomitant]
     Active Substance: HERBALS
     Route: 050
     Dates: start: 20220518, end: 20220519
  11. HERBALS [Concomitant]
     Active Substance: HERBALS
     Route: 050
     Dates: start: 20220320, end: 20220324
  12. HERBALS [Concomitant]
     Active Substance: HERBALS
     Route: 050
     Dates: start: 20220615, end: 20220618
  13. HERBALS [Concomitant]
     Active Substance: HERBALS
     Route: 050
     Dates: start: 20220719, end: 20220721
  14. HERBALS [Concomitant]
     Active Substance: HERBALS
     Route: 050
     Dates: start: 20220802, end: 20220804
  15. HERBALS [Concomitant]
     Active Substance: HERBALS
     Route: 050
     Dates: start: 20220829, end: 20220902
  16. HERBALS [Concomitant]
     Active Substance: HERBALS
     Route: 050
     Dates: start: 20221225, end: 20221227
  17. CEFDINIR [Concomitant]
     Active Substance: CEFDINIR
     Indication: Urinary tract infection
     Route: 048
     Dates: start: 20220320, end: 20220324
  18. CEFDINIR [Concomitant]
     Active Substance: CEFDINIR
     Route: 048
     Dates: start: 20220615, end: 20220618
  19. PAMIDRONATE DISODIUM AND GLUCOSE [Concomitant]
     Indication: Metastases to bone
     Route: 050
     Dates: start: 20220426, end: 20220427
  20. PAMIDRONATE DISODIUM AND GLUCOSE [Concomitant]
     Route: 050
     Dates: start: 20220426, end: 20220427
  21. PAMIDRONATE DISODIUM AND GLUCOSE [Concomitant]
     Route: 050
     Dates: start: 20220927, end: 20220928
  22. PAMIDRONATE DISODIUM AND GLUCOSE [Concomitant]
     Route: 050
     Dates: start: 20220518, end: 20220519
  23. ATORVASTATIN CALCIUM [Concomitant]
     Active Substance: ATORVASTATIN CALCIUM
     Route: 048
     Dates: start: 20220426, end: 20220429
  24. LIVE COMBINED BIFIDOBACTERIUM, LACTOBACILLUS AND ENTEROCOCCUS [Concomitant]
     Indication: Diarrhoea
     Route: 048
     Dates: start: 20220426, end: 20220429
  25. SODIUM BICARBONATE [Concomitant]
     Active Substance: SODIUM BICARBONATE
     Dosage: PILL
     Route: 048
     Dates: start: 20220615, end: 20220618
  26. MANNATIDE [Concomitant]
     Route: 050
     Dates: start: 20220927, end: 20220930
  27. MANNATIDE [Concomitant]
     Dosage: LIQUID
     Route: 050
     Dates: start: 20221225, end: 20221227
  28. IBUPROFEN [Concomitant]
     Active Substance: IBUPROFEN
     Indication: Pneumonia viral
     Route: 048
     Dates: start: 20221225, end: 20221227
  29. CODEINE PHOSPHATE AND PLATYCODON TABLETS [Concomitant]
     Indication: Pneumonia viral
     Route: 048
     Dates: start: 20221225, end: 20221228
  30. CEFOTAXIME SODIUM [Concomitant]
     Active Substance: CEFOTAXIME SODIUM
     Indication: Pneumonia viral
     Route: 050
     Dates: start: 20221227, end: 20230104
  31. AMBROXOL HYDROCHLORIDE [Concomitant]
     Active Substance: AMBROXOL HYDROCHLORIDE
     Indication: Pneumonia viral
     Route: 042
     Dates: start: 20221228, end: 20230104
  32. ACETYLCYSTEINE [Concomitant]
     Active Substance: ACETYLCYSTEINE
     Indication: Pneumonia viral
     Route: 048
     Dates: start: 20221217, end: 20230104
  33. RABEPRAZOLE SODIUM [Concomitant]
     Active Substance: RABEPRAZOLE SODIUM
     Dosage: ENTERIC-COATED CAPSULES GASTROINTESTINAL REACTIONS
     Route: 048
     Dates: start: 20220721, end: 20220725
  34. HEART TREASURE PILL [Concomitant]
     Indication: Heart rate
     Route: 048
     Dates: start: 20230828
  35. LEVOFLOXACIN LACTATE [Concomitant]
     Active Substance: LEVOFLOXACIN LACTATE
     Route: 048
     Dates: start: 20230302, end: 202304
  36. PHOSPHOLIPID [Concomitant]
     Active Substance: PHOSPHOLIPID
     Indication: Hepatic steatosis
     Route: 048
     Dates: start: 20230301, end: 20230302
  37. RABEPRAZOLE [Concomitant]
     Active Substance: RABEPRAZOLE
     Route: 048
     Dates: start: 20230426, end: 202305
  38. LEVOFLOXACIN HYDROCHLORIDE [Concomitant]
     Active Substance: LEVOFLOXACIN HYDROCHLORIDE
     Route: 042
     Dates: start: 20230530, end: 20230531
  39. HERBALS [Concomitant]
     Active Substance: HERBALS
     Indication: Hepatic steatosis
     Route: 042
     Dates: start: 20230130, end: 20230201
  40. HERBALS [Concomitant]
     Active Substance: HERBALS
     Route: 050
     Dates: start: 20220518, end: 20220519
  41. HERBALS [Concomitant]
     Active Substance: HERBALS
     Route: 050
     Dates: start: 20220320, end: 20220324
  42. HERBALS [Concomitant]
     Active Substance: HERBALS
     Route: 050
     Dates: start: 20220615, end: 20220618
  43. HERBALS [Concomitant]
     Active Substance: HERBALS
     Route: 050
     Dates: start: 20220719, end: 20220721
  44. HERBALS [Concomitant]
     Active Substance: HERBALS
     Route: 050
     Dates: start: 20220802, end: 20220804
  45. HERBALS [Concomitant]
     Active Substance: HERBALS
     Route: 050
     Dates: start: 20220829, end: 20220902
  46. HERBALS [Concomitant]
     Active Substance: HERBALS
     Route: 050
     Dates: start: 20221225, end: 20221227
  47. HERBALS [Concomitant]
     Active Substance: HERBALS
     Route: 042
     Dates: start: 20230320, end: 20230323
  48. HERBALS [Concomitant]
     Active Substance: HERBALS
     Route: 042
     Dates: start: 20230424, end: 20230426
  49. HERBALS [Concomitant]
     Active Substance: HERBALS
     Route: 042
     Dates: start: 20230530, end: 20230531
  50. HERBALS [Concomitant]
     Active Substance: HERBALS
     Route: 042
     Dates: start: 20230619, end: 20230621
  51. RABEPRAZOLE [Concomitant]
     Active Substance: RABEPRAZOLE
     Route: 048
     Dates: start: 20230426, end: 202305
  52. HERBALS [Concomitant]
     Active Substance: HERBALS
     Indication: Hepatic steatosis
     Route: 042
     Dates: start: 20230530, end: 20230531
  53. HERBALS [Concomitant]
     Active Substance: HERBALS
     Route: 042
     Dates: start: 20230619, end: 20230621

REACTIONS (4)
  - Blood creatinine increased [Not Recovered/Not Resolved]
  - Anaemia [Recovered/Resolved]
  - Urinary tract infection [Recovered/Resolved]
  - Hyperuricaemia [Not Recovered/Not Resolved]

NARRATIVE: CASE EVENT DATE: 20220119
